FAERS Safety Report 12461447 (Version 2)
Quarter: 2016Q3

REPORT INFORMATION
  Report Type: Spontaneous
  Country: US (occurrence: US)
  Receive Date: 20160613
  Receipt Date: 20160804
  Transmission Date: 20161109
  Serious: Yes (Life-Threatening, Other)
  Sender: FDA-Public Use
  Company Number: US-ELI_LILLY_AND_COMPANY-US201606003898

PATIENT
  Age: 45 Year
  Sex: Male

DRUGS (14)
  1. METHADONE [Interacting]
     Active Substance: METHADONE HYDROCHLORIDE
     Indication: PRODUCT USED FOR UNKNOWN INDICATION
     Dosage: UNK, UNKNOWN
     Route: 065
  2. ONDANSETRON [Interacting]
     Active Substance: ONDANSETRON
     Indication: MYALGIA
  3. SERTRALINE [Interacting]
     Active Substance: SERTRALINE HYDROCHLORIDE
     Indication: DEPRESSION
     Dosage: UNK, UNKNOWN
     Route: 065
  4. AZITHROMYCIN ANHYDROUS. [Interacting]
     Active Substance: AZITHROMYCIN ANHYDROUS
     Indication: MALAISE
  5. AZITHROMYCIN ANHYDROUS. [Interacting]
     Active Substance: AZITHROMYCIN ANHYDROUS
     Indication: PYREXIA
     Dosage: UNK, UNKNOWN
     Route: 065
  6. AZITHROMYCIN ANHYDROUS. [Interacting]
     Active Substance: AZITHROMYCIN ANHYDROUS
     Indication: HEADACHE
  7. AZITHROMYCIN ANHYDROUS. [Interacting]
     Active Substance: AZITHROMYCIN ANHYDROUS
     Indication: NAUSEA
  8. DIPHENHYDRAMINE. [Interacting]
     Active Substance: DIPHENHYDRAMINE
     Indication: PRODUCT USED FOR UNKNOWN INDICATION
     Dosage: UNK, UNKNOWN
     Route: 065
  9. AZITHROMYCIN ANHYDROUS. [Interacting]
     Active Substance: AZITHROMYCIN ANHYDROUS
     Indication: MYALGIA
  10. ONDANSETRON [Interacting]
     Active Substance: ONDANSETRON
     Indication: MALAISE
  11. ONDANSETRON [Interacting]
     Active Substance: ONDANSETRON
     Indication: PYREXIA
     Dosage: UNK, UNKNOWN
     Route: 065
  12. ONDANSETRON [Interacting]
     Active Substance: ONDANSETRON
     Indication: NAUSEA
  13. ONDANSETRON [Interacting]
     Active Substance: ONDANSETRON
     Indication: HEADACHE
  14. FLUOXETINE HYDROCHLORIDE. [Suspect]
     Active Substance: FLUOXETINE HYDROCHLORIDE
     Indication: PRODUCT USED FOR UNKNOWN INDICATION
     Dosage: UNK, UNKNOWN
     Route: 065

REACTIONS (14)
  - Cardiac arrest [Recovered/Resolved]
  - Nausea [Unknown]
  - Electrocardiogram QT prolonged [Recovered/Resolved]
  - Cardiac arrest [Unknown]
  - Torsade de pointes [Recovered/Resolved]
  - Loss of consciousness [Unknown]
  - Pyrexia [Unknown]
  - Blood magnesium decreased [Unknown]
  - Drug interaction [Unknown]
  - Myalgia [Unknown]
  - Intentional product misuse [Unknown]
  - Malaise [Unknown]
  - Headache [Unknown]
  - Ventricular tachycardia [Recovered/Resolved]
